FAERS Safety Report 23998954 (Version 1)
Quarter: 2024Q2

REPORT INFORMATION
  Report Type: Spontaneous
  Country: US (occurrence: US)
  Receive Date: 20240621
  Receipt Date: 20240621
  Transmission Date: 20240716
  Serious: No
  Sender: FDA-Public Use
  Company Number: US-PFIZER INC-PV202400080286

PATIENT
  Age: 31 Year
  Sex: Female

DRUGS (1)
  1. ZAVZPRET [Suspect]
     Active Substance: ZAVEGEPANT HYDROCHLORIDE
     Indication: Migraine
     Dosage: INSTILL 1 SPRAY IN 1 NOSTRIL ONCE AS NEEDED AT ONSET OF MIGRAINE, MAX 1 DOSE IN 24HRS

REACTIONS (1)
  - Nausea [Unknown]
